FAERS Safety Report 20248254 (Version 1)
Quarter: 2021Q4

REPORT INFORMATION
  Report Type: Spontaneous
  Country: US (occurrence: None)
  Receive Date: 20211228
  Receipt Date: 20211228
  Transmission Date: 20220303
  Serious: Yes (Hospitalization)
  Sender: FDA-Public Use
  Company Number: None

PATIENT
  Age: 78 Year
  Sex: Male
  Weight: 95 kg

DRUGS (2)
  1. PREDNISONE [Suspect]
     Active Substance: PREDNISONE
     Indication: Pain
     Dates: start: 20211026, end: 20211101
  2. DICLOFENAC SODIUM [Suspect]
     Active Substance: DICLOFENAC SODIUM
     Indication: Pain
     Dates: start: 20211026, end: 20211125

REACTIONS (10)
  - Haemoptysis [None]
  - Gastric disorder [None]
  - Mass [None]
  - Fall [None]
  - Gastric ulcer [None]
  - Abdominal abscess [None]
  - Pyrexia [None]
  - Peptic ulcer [None]
  - Nausea [None]
  - Vomiting [None]

NARRATIVE: CASE EVENT DATE: 20211121
